FAERS Safety Report 10203543 (Version 1)
Quarter: 2014Q2

REPORT INFORMATION
  Report Type: Spontaneous
  Country: GB (occurrence: None)
  Receive Date: 20140523
  Receipt Date: 20140523
  Transmission Date: 20141212
  Serious: Yes (Other)
  Sender: FDA-Public Use
  Company Number: FK201401893

PATIENT
  Age: 62 Year
  Sex: Male

DRUGS (2)
  1. CARBOPLATIN [Suspect]
     Indication: PRODUCT USED FOR UNKNOWN INDICATION
  2. PEMETREXED [Suspect]
     Indication: PRODUCT USED FOR UNKNOWN INDICATION
     Dosage: NOT OTHERWISE SPECIFIED
     Route: 042

REACTIONS (3)
  - Off label use [None]
  - Neutropenia [None]
  - Rash [None]
